FAERS Safety Report 5747919-7 (Version None)
Quarter: 2008Q2

REPORT INFORMATION
  Report Type: 
  Country: None (occurrence: None)
  Receive Date: 20080523
  Receipt Date: 20080514
  Transmission Date: 20081010
  Serious: Yes (Death)
  Sender: FDA-Public Use
  Company Number: US-ABBOTT-08P-163-0449982-00

PATIENT
  Sex: Male

DRUGS (7)
  1. METHAMPHETAMINE HYDROCHLORIDE [Suspect]
     Indication: DRUG USE FOR UNKNOWN INDICATION
  2. CLOZAPINE [Suspect]
     Indication: PSYCHOTIC DISORDER
  3. CLOZAPINE [Suspect]
  4. CLOZAPINE [Suspect]
  5. CLOZAPINE [Suspect]
  6. CLOZAPINE [Suspect]
  7. CLOZAPINE [Suspect]

REACTIONS (1)
  - OVERDOSE [None]
